FAERS Safety Report 17731529 (Version 2)
Quarter: 2020Q3

REPORT INFORMATION
  Report Type: Spontaneous
  Country: JP (occurrence: JP)
  Receive Date: 20200430
  Receipt Date: 20200924
  Transmission Date: 20201102
  Serious: Yes (Hospitalization, Other)
  Sender: FDA-Public Use
  Company Number: JP-AMGEN-JPNSP2020069672

PATIENT
  Age: 72 Year
  Sex: Male
  Weight: 55.3 kg

DRUGS (10)
  1. ALFACALCIDOL [Concomitant]
     Active Substance: ALFACALCIDOL
     Dosage: 0.25 MICROGRAM, QD
     Route: 048
     Dates: start: 20180516, end: 20180828
  2. PARSABIV [Suspect]
     Active Substance: ETELCALCETIDE HYDROCHLORIDE
     Dosage: 2.5 MILLIGRAM, 3 TIMES/WK
     Route: 010
     Dates: start: 20200515
  3. CALCITRIOL. [Concomitant]
     Active Substance: CALCITRIOL
     Dosage: 0.5 MICROGRAM, QD
     Route: 048
     Dates: start: 20181121, end: 20190604
  4. P?TOL [SUCROFERRIC OXYHYDROXIDE] [Concomitant]
     Active Substance: SUCROFERRIC OXYHYDROXIDE
     Dosage: 750 MILLIGRAM, QD
     Route: 048
     Dates: end: 20190123
  5. EPOGIN [Concomitant]
     Active Substance: ERYTHROPOIETIN
     Dosage: 9000 INTERNATIONAL UNIT PER DECILITRE, QWK
     Route: 065
     Dates: start: 20190206
  6. PARSABIV [Suspect]
     Active Substance: ETELCALCETIDE HYDROCHLORIDE
     Dosage: 2.5 MILLIGRAM, 3 TIMES/WK
     Route: 010
     Dates: start: 20190213, end: 20190830
  7. PARSABIV [Suspect]
     Active Substance: ETELCALCETIDE HYDROCHLORIDE
     Dosage: 2.5 MILLIGRAM, 3 TIMES/WK
     Route: 010
     Dates: start: 20200115, end: 20200424
  8. CALCITRIOL. [Concomitant]
     Active Substance: CALCITRIOL
     Dosage: 0.25 MICROGRAM, QD
     Route: 048
     Dates: start: 20180829, end: 20181120
  9. CALCITRIOL. [Concomitant]
     Active Substance: CALCITRIOL
     Dosage: 0.25 MICROGRAM, QD
     Route: 048
     Dates: start: 20190605
  10. PARSABIV [Suspect]
     Active Substance: ETELCALCETIDE HYDROCHLORIDE
     Indication: HYPERPARATHYROIDISM SECONDARY
     Dosage: 5 MILLIGRAM, 3 TIMES/WK
     Route: 010
     Dates: start: 20180716, end: 20190211

REACTIONS (5)
  - Pseudomembranous colitis [Recovered/Resolved]
  - Cholangitis [Recovering/Resolving]
  - Sepsis [Recovering/Resolving]
  - Bile duct stone [Recovering/Resolving]
  - Gastroenteritis [Recovering/Resolving]

NARRATIVE: CASE EVENT DATE: 20190902
